FAERS Safety Report 6412567-2 (Version None)
Quarter: 2009Q4

REPORT INFORMATION
  Report Type: 
  Country: None (occurrence: None)
  Receive Date: 20091023
  Receipt Date: 20091021
  Transmission Date: 20100525
  Serious: Yes (Hospitalization)
  Sender: FDA-Public Use
  Company Number: IT-ROXANE LABORATORIES, INC.-2009-RO-01082RO

PATIENT
  Age: 45 Year
  Sex: Female

DRUGS (4)
  1. RISPERIDONE [Suspect]
     Indication: SCHIZOPHRENIA, DISORGANISED TYPE
  2. LOW MOLECULAR WEIGHT HEPARIN [Concomitant]
     Indication: ANTICOAGULANT THERAPY
     Route: 058
  3. LORAZEPAM [Concomitant]
     Indication: NEUROLEPTIC MALIGNANT SYNDROME
  4. CLOZAPINE [Concomitant]
     Indication: SCHIZOPHRENIA, DISORGANISED TYPE

REACTIONS (5)
  - HYPERAMYLASAEMIA [None]
  - HYPERLIPASAEMIA [None]
  - NEUROLEPTIC MALIGNANT SYNDROME [None]
  - PANCREATITIS ACUTE [None]
  - RHABDOMYOLYSIS [None]
